FAERS Safety Report 10195080 (Version 1)
Quarter: 2014Q2

REPORT INFORMATION
  Report Type: Spontaneous
  Country: BR (occurrence: BR)
  Receive Date: 20140526
  Receipt Date: 20140526
  Transmission Date: 20141212
  Serious: Yes (Death)
  Sender: FDA-Public Use
  Company Number: BR-PFIZER INC-2014140441

PATIENT
  Sex: Female

DRUGS (1)
  1. SUTENT [Suspect]
     Indication: RENAL CANCER
     Dosage: 50 MG, UNK

REACTIONS (1)
  - Death [Fatal]
